FAERS Safety Report 6134407-1 (Version None)
Quarter: 2009Q1

REPORT INFORMATION
  Report Type: 
  Country: None (occurrence: None)
  Receive Date: 20090327
  Receipt Date: 20090319
  Transmission Date: 20090719
  Serious: Yes (Other)
  Sender: FDA-Public Use
  Company Number: US-JNJFOC-20090305471

PATIENT
  Sex: Male
  Weight: 105.24 kg

DRUGS (5)
  1. DURAGESIC-100 [Suspect]
     Indication: CANCER PAIN
     Route: 062
  2. XELODA [Concomitant]
     Dosage: 2150 MG/TABLET/500 MG/1 TWICE A DAY/ORAL
     Route: 048
  3. XELODA [Concomitant]
     Indication: COLON CANCER
     Dosage: 2150 MG/TABLET/500 MG/4 TWICE A DAY/ORAL
     Route: 048
  4. SYNTHROID [Concomitant]
     Indication: THYROID DISORDER
     Route: 048
  5. ASPIRIN [Concomitant]
     Indication: CARDIOVASCULAR DISORDER
     Route: 048

REACTIONS (3)
  - MALIGNANT NEOPLASM PROGRESSION [None]
  - PAIN [None]
  - WRONG TECHNIQUE IN DRUG USAGE PROCESS [None]
